FAERS Safety Report 8003177-4 (Version None)
Quarter: 2011Q4

REPORT INFORMATION
  Report Type: 
  Country: None (occurrence: None)
  Receive Date: 20111222
  Receipt Date: 20111213
  Transmission Date: 20120403
  Serious: Yes (Hospitalization, Other)
  Sender: FDA-Public Use
  Company Number: PHEH2007US12470

PATIENT
  Sex: Female

DRUGS (53)
  1. ANTIBIOTICS [Concomitant]
  2. ADVAIR DISKUS 100/50 [Concomitant]
  3. ACTOS [Concomitant]
  4. PROTONIX [Concomitant]
  5. MICRO-K [Concomitant]
  6. TAGAMET [Concomitant]
  7. VIOXX [Concomitant]
  8. ALLOPURINOL [Concomitant]
  9. AMIODARONE [Concomitant]
  10. NYSTATIN [Concomitant]
     Dosage: 5 ML, 4 TIMES A DAY
  11. RESTORIL [Concomitant]
  12. PEN-VEE K [Concomitant]
  13. LORTAB [Concomitant]
  14. DILACOR XR [Concomitant]
  15. PENICILLIN [Concomitant]
  16. COLACE [Concomitant]
  17. HYDROCHLOROTHIAZIDE [Concomitant]
  18. ACETAMINOPHEN [Concomitant]
  19. ADVIL LIQUI-GELS [Concomitant]
  20. ZESTRIL [Concomitant]
  21. DILTIAZEM HCL [Concomitant]
  22. CLONIDINE [Concomitant]
  23. COSOPT [Concomitant]
  24. ADVAIR DISKUS 100/50 [Concomitant]
  25. ASPIRIN [Concomitant]
  26. VICODIN [Concomitant]
  27. CYCLOBENZAPRINE [Concomitant]
  28. ZOMETA [Suspect]
     Indication: OSTEITIS DEFORMANS
  29. PERIDEX [Concomitant]
     Dosage: AFTER MEALS THREE TIMES DAILY
  30. CEPHALEXIN [Concomitant]
     Dosage: UNK
     Dates: start: 20060302, end: 20060525
  31. BENICAR [Concomitant]
  32. PROTONIX [Concomitant]
  33. TRAVATAN [Concomitant]
  34. LEVOTHYROXINE SODIUM [Concomitant]
  35. PRILOSEC [Concomitant]
  36. VASOTEC [Concomitant]
  37. FOSAMAX [Concomitant]
  38. PLAVIX [Concomitant]
  39. LASIX [Concomitant]
  40. POTASSIUM CHLORIDE [Concomitant]
  41. PHENYTOIN SODIUM [Concomitant]
  42. TYLENOL W/ CODEINE [Concomitant]
  43. EYE DROPS [Concomitant]
     Indication: GLAUCOMA
  44. NEURONTIN [Concomitant]
  45. AREDIA [Suspect]
     Indication: OSTEITIS DEFORMANS
  46. PAMIDRONATE DISODIUM [Suspect]
  47. LEVAQUIN [Concomitant]
     Dosage: 250MG DAILY
  48. CLINDAMYCIN [Concomitant]
  49. DIGOXIN [Concomitant]
  50. SYNTHROID [Concomitant]
  51. FLAGYL [Concomitant]
  52. VITAMIN E [Concomitant]
  53. FOLIC ACID [Concomitant]

REACTIONS (100)
  - ANXIETY [None]
  - PHYSICAL DISABILITY [None]
  - PULMONARY VALVE INCOMPETENCE [None]
  - DIABETES MELLITUS [None]
  - INFECTION SUSCEPTIBILITY INCREASED [None]
  - ASPIRATION JOINT [None]
  - ABDOMINAL DISCOMFORT [None]
  - ARTHRALGIA [None]
  - ATELECTASIS [None]
  - ARTHRITIS BACTERIAL [None]
  - INCONTINENCE [None]
  - PAIN [None]
  - SWELLING [None]
  - EMOTIONAL DISTRESS [None]
  - WHEEZING [None]
  - GOUT [None]
  - DEVICE RELATED INFECTION [None]
  - INSOMNIA [None]
  - OCCULT BLOOD [None]
  - FUSOBACTERIUM INFECTION [None]
  - KLEBSIELLA INFECTION [None]
  - SICK SINUS SYNDROME [None]
  - INFLAMMATION [None]
  - HEMIPARESIS [None]
  - HEART RATE IRREGULAR [None]
  - ARTHROPATHY [None]
  - LYMPHANGITIS [None]
  - DEFORMITY [None]
  - OSTEOMYELITIS [None]
  - HYPOPHAGIA [None]
  - LIFE EXPECTANCY SHORTENED [None]
  - INJURY [None]
  - ACQUIRED DIAPHRAGMATIC EVENTRATION [None]
  - CARDIAC ARREST [None]
  - SINUS BRADYCARDIA [None]
  - RHEUMATOID ARTHRITIS [None]
  - WOUND INFECTION STAPHYLOCOCCAL [None]
  - RENAL FAILURE [None]
  - BREAST OEDEMA [None]
  - URINARY TRACT INFECTION BACTERIAL [None]
  - GASTRIC ULCER [None]
  - TOOTH FRACTURE [None]
  - CARPAL TUNNEL SYNDROME [None]
  - CHEST PAIN [None]
  - CELLULITIS [None]
  - SYNCOPE [None]
  - LEFT VENTRICULAR HYPERTROPHY [None]
  - SLEEP APNOEA SYNDROME [None]
  - HYPOTENSION [None]
  - HYPOTHYROIDISM [None]
  - BETA HAEMOLYTIC STREPTOCOCCAL INFECTION [None]
  - DIARRHOEA [None]
  - INTERVERTEBRAL DISC DEGENERATION [None]
  - SPONDYLOLYSIS [None]
  - SYNOVITIS [None]
  - OSTEOARTHRITIS [None]
  - INFECTION [None]
  - DISCOMFORT [None]
  - ANHEDONIA [None]
  - GLOSSODYNIA [None]
  - LEUKOCYTOSIS [None]
  - IRRITABLE BOWEL SYNDROME [None]
  - POLYNEUROPATHY [None]
  - URINE ABNORMALITY [None]
  - PNEUMONIA [None]
  - SUPRAVENTRICULAR TACHYCARDIA [None]
  - JOINT STIFFNESS [None]
  - LOOSE TOOTH [None]
  - TOOTH INFECTION [None]
  - THROMBOSIS [None]
  - TRICUSPID VALVE INCOMPETENCE [None]
  - AORTIC ARTERIOSCLEROSIS [None]
  - ANAEMIA [None]
  - VERTIGO [None]
  - NASAL ULCER [None]
  - BRADYCARDIA [None]
  - MYOCARDIAL INFARCTION [None]
  - CARDIAC FAILURE CONGESTIVE [None]
  - DYSPNOEA [None]
  - OBESITY [None]
  - OSTEONECROSIS OF JAW [None]
  - FISTULA [None]
  - BONE DISORDER [None]
  - PLEURAL EFFUSION [None]
  - WHITE BLOOD CELLS URINE POSITIVE [None]
  - ASTHMA [None]
  - MOBILITY DECREASED [None]
  - CARDIOMEGALY [None]
  - LYMPHADENOPATHY [None]
  - DEEP VEIN THROMBOSIS [None]
  - PAIN IN JAW [None]
  - OEDEMA PERIPHERAL [None]
  - ABDOMINAL PAIN [None]
  - PRURITUS [None]
  - GASTROOESOPHAGEAL REFLUX DISEASE [None]
  - ATRIAL FIBRILLATION [None]
  - RECTAL HAEMORRHAGE [None]
  - GASTROINTESTINAL HAEMORRHAGE [None]
  - PEPTIC ULCER [None]
  - HYPOVOLAEMIA [None]
